FAERS Safety Report 6463081-X (Version None)
Quarter: 2009Q4

REPORT INFORMATION
  Report Type: 
  Country: None (occurrence: None)
  Receive Date: 20091124
  Receipt Date: 20091112
  Transmission Date: 20100525
  Serious: Yes (Hospitalization)
  Sender: FDA-Public Use
  Company Number: 235423K09USA

PATIENT
  Age: 58 Year
  Sex: Female
  Weight: 82 kg

DRUGS (5)
  1. REBIF [Suspect]
     Indication: MULTIPLE SCLEROSIS
     Dosage: 44 MCG, 3 IN 1 WEEKS, SUBCUTANEOUS
     Route: 058
     Dates: start: 20071109
  2. KEPPRA [Concomitant]
  3. AMLODIPINE [Concomitant]
  4. ESTRADIOL (ESTRADIOL /00045401/) [Concomitant]
  5. DETROL LA [Concomitant]

REACTIONS (6)
  - ANAEMIA [None]
  - ASTHENIA [None]
  - CONTUSION [None]
  - FALL [None]
  - HAEMORRHAGE [None]
  - HYPONATRAEMIA [None]
